FAERS Safety Report 7750989-8 (Version None)
Quarter: 2011Q3

REPORT INFORMATION
  Report Type: 
  Country: None (occurrence: None)
  Receive Date: 20110914
  Receipt Date: 20110906
  Transmission Date: 20111222
  Serious: Yes (Hospitalization, Other)
  Sender: FDA-Public Use
  Company Number: US-BAYER-2011-050353

PATIENT
  Age: 32 Year
  Sex: Female
  Weight: 104 kg

DRUGS (9)
  1. YASMIN [Suspect]
     Indication: PRODUCT USED FOR UNKNOWN INDICATION
     Dosage: UNK
     Dates: start: 20070101, end: 20080101
  2. IBUPROFEN [Concomitant]
  3. OXYCODONE HCL AND ACETAMINOPHEN [Concomitant]
  4. MAGNESIUM HYDROXIDE TAB [Concomitant]
  5. YAZ [Suspect]
     Indication: PRODUCT USED FOR UNKNOWN INDICATION
     Dosage: UNK
     Dates: start: 20070101, end: 20080101
  6. ADALAT [Concomitant]
     Dosage: 90 MG, UNK
  7. DARVOCET [Concomitant]
  8. FOLIC ACID [Concomitant]
  9. HYDROCHLOROTHIAZIDE [Concomitant]

REACTIONS (8)
  - PAIN [None]
  - HEART RATE IRREGULAR [None]
  - SUPRAVENTRICULAR TACHYCARDIA [None]
  - CHOLECYSTITIS CHRONIC [None]
  - CHOLELITHIASIS [None]
  - CHOLECYSTECTOMY [None]
  - AORTIC STENOSIS [None]
  - SUPRAVENTRICULAR EXTRASYSTOLES [None]
